FAERS Safety Report 7676836-0 (Version None)
Quarter: 2011Q3

REPORT INFORMATION
  Report Type: 
  Country: None (occurrence: None)
  Receive Date: 20110811
  Receipt Date: 20110803
  Transmission Date: 20111222
  Serious: Yes (Hospitalization, Disabling)
  Sender: FDA-Public Use
  Company Number: IQ-SANOFI-AVENTIS-2011SA050013

PATIENT
  Sex: Female

DRUGS (3)
  1. ATENOLOL [Concomitant]
     Indication: HYPERTENSION
     Route: 048
  2. TAXOTERE [Suspect]
     Indication: BREAST CANCER
     Route: 042
     Dates: start: 20110720, end: 20110720
  3. AMLODIPINE [Concomitant]
     Indication: HYPERTENSION
     Route: 048

REACTIONS (11)
  - ASTHENIA [None]
  - BACK PAIN [None]
  - VAGINAL HAEMORRHAGE [None]
  - CEREBRAL ISCHAEMIA [None]
  - STRESS ULCER [None]
  - ISCHAEMIC STROKE [None]
  - URINARY INCONTINENCE [None]
  - HEMIPARESIS [None]
  - SPINAL CORD COMPRESSION [None]
  - INTERVERTEBRAL DISC DISORDER [None]
  - FAECAL INCONTINENCE [None]
